FAERS Safety Report 6810549-X (Version None)
Quarter: 2010Q2

REPORT INFORMATION
  Report Type: 
  Country: None (occurrence: None)
  Receive Date: 20100630
  Receipt Date: 20100625
  Transmission Date: 20101027
  Serious: Yes (Hospitalization, Other)
  Sender: FDA-Public Use
  Company Number: FR-ROXANE LABORATORIES, INC.-2010-RO-00762RO

PATIENT
  Age: 76 Year
  Sex: Female

DRUGS (7)
  1. CITALOPRAM HYDROBROMIDE [Suspect]
  2. LAMOTRIGINE [Suspect]
     Indication: MYOCLONIC EPILEPSY
  3. PHENOBARBITAL [Suspect]
     Indication: EPILEPSY
  4. AMANTADINE HCL [Suspect]
     Indication: PARKINSON'S DISEASE
  5. LEVODOPA [Suspect]
     Indication: PARKINSON'S DISEASE
  6. CARBAMAZEPINE [Suspect]
     Indication: MYOCLONIC EPILEPSY
  7. MIANSERIN [Suspect]

REACTIONS (4)
  - CONFUSIONAL STATE [None]
  - CONVULSION [None]
  - FALL [None]
  - MYOCLONUS [None]
